FAERS Safety Report 13372908 (Version 1)
Quarter: 2017Q1

REPORT INFORMATION
  Report Type: Report from Study
  Country: US (occurrence: US)
  Receive Date: 20170327
  Receipt Date: 20170327
  Transmission Date: 20170429
  Serious: Yes (Other)
  Sender: FDA-Public Use
  Company Number: US-BAYER-2017-050566

PATIENT
  Sex: Female

DRUGS (1)
  1. BETASERON [Suspect]
     Active Substance: INTERFERON BETA-1B
     Indication: PRODUCT USED FOR UNKNOWN INDICATION
     Dosage: UNK
     Dates: start: 19940101, end: 19970101

REACTIONS (3)
  - Multiple sclerosis [Not Recovered/Not Resolved]
  - Vein rupture [Not Recovered/Not Resolved]
  - Vein disorder [Not Recovered/Not Resolved]
